FAERS Safety Report 9197662 (Version 2)
Quarter: 2014Q3

REPORT INFORMATION
  Report Type: Spontaneous
  Country: US (occurrence: US)
  Receive Date: 20130328
  Receipt Date: 20140801
  Transmission Date: 20150326
  Serious: Yes (Hospitalization, Other)
  Sender: FDA-Public Use
  Company Number: US-BAYER-2013-036869

PATIENT
  Age: 32 Year
  Sex: Female

DRUGS (4)
  1. YAZ [Suspect]
     Active Substance: DROSPIRENONE\ETHINYL ESTRADIOL
  2. LEVAQUIN [Concomitant]
     Active Substance: LEVOFLOXACIN
     Indication: LOBAR PNEUMONIA
  3. OCELLA [Suspect]
     Active Substance: DROSPIRENONE\ETHINYL ESTRADIOL
  4. YASMIN [Suspect]
     Active Substance: DROSPIRENONE\ETHINYL ESTRADIOL

REACTIONS (5)
  - Biliary dyskinesia [None]
  - Emotional distress [None]
  - Injury [Recovering/Resolving]
  - Pulmonary embolism [Recovering/Resolving]
  - Cholecystectomy [None]

NARRATIVE: CASE EVENT DATE: 20120413
